FAERS Safety Report 10016665 (Version 2)
Quarter: 2014Q1

REPORT INFORMATION
  Report Type: Spontaneous
  Country: US (occurrence: US)
  Receive Date: 20140317
  Receipt Date: 20140317
  Transmission Date: 20141002
  Serious: Yes (Death)
  Sender: FDA-Public Use
  Company Number: US-GE HEALTHCARE MEDICAL DIAGNOSTICS-OSCN-PR-0906S-0295

PATIENT
  Age: 50 Year
  Sex: Male

DRUGS (8)
  1. OMNISCAN [Suspect]
     Indication: PRODUCT USED FOR UNKNOWN INDICATION
     Route: 042
     Dates: start: 20000113, end: 20000113
  2. OMNISCAN [Suspect]
     Route: 042
     Dates: start: 20021004, end: 20021004
  3. OMNISCAN [Suspect]
     Route: 042
     Dates: start: 20031103, end: 20031103
  4. OMNISCAN [Suspect]
     Route: 042
     Dates: start: 20031104, end: 20031104
  5. OMNISCAN [Suspect]
     Route: 042
     Dates: start: 20041227, end: 20041227
  6. OMNISCAN [Suspect]
     Route: 042
     Dates: start: 20050427, end: 20050427
  7. OMNISCAN [Suspect]
     Route: 042
     Dates: start: 20051026, end: 20051026
  8. MAGNEVIST [Suspect]
     Indication: PRODUCT USED FOR UNKNOWN INDICATION
     Route: 042
     Dates: start: 19901108, end: 19901108

REACTIONS (1)
  - Nephrogenic systemic fibrosis [Fatal]
